FAERS Safety Report 4975656-5 (Version None)
Quarter: 2006Q2

REPORT INFORMATION
  Report Type: 
  Country: None (occurrence: None)
  Receive Date: 20060411
  Receipt Date: 20060323
  Transmission Date: 20061013
  Serious: Yes (Other)
  Sender: FDA-Public Use
  Company Number: US200603005982

PATIENT
  Age: 21 Year
  Sex: Female

DRUGS (5)
  1. HUMULIN U [Suspect]
     Indication: DIABETES MELLITUS
     Dates: start: 20000101
  2. HUMULIN R [Suspect]
     Indication: DIABETES MELLITUS
     Dates: end: 20000101
  3. HUMULIN R [Suspect]
     Indication: DIABETES MELLITUS
     Dates: start: 20060321
  4. HUMULIN N [Suspect]
     Indication: DIABETES MELLITUS
     Dates: end: 20000101
  5. HUMALOG [Suspect]
     Indication: DIABETES MELLITUS
     Dates: start: 20000101, end: 20060321

REACTIONS (7)
  - BLOOD GLUCOSE FLUCTUATION [None]
  - CONVULSION [None]
  - GASTRIC DISORDER [None]
  - IMPAIRED GASTRIC EMPTYING [None]
  - NAUSEA [None]
  - STOMACH DISCOMFORT [None]
  - VOMITING [None]
